FAERS Safety Report 9476542 (Version 1)
Quarter: 2013Q3

REPORT INFORMATION
  Report Type: Report from Study
  Country: CA (occurrence: CA)
  Receive Date: 20130826
  Receipt Date: 20130826
  Transmission Date: 20140515
  Serious: Yes (Other)
  Sender: FDA-Public Use
  Company Number: CA-ROCHE-1264621

PATIENT
  Age: 60 Year
  Sex: Female
  Weight: 66.7 kg

DRUGS (17)
  1. RITUXAN [Suspect]
     Indication: CHRONIC LYMPHOCYTIC LEUKAEMIA
     Route: 042
  2. SEPTRA [Concomitant]
  3. SYNTHROID [Concomitant]
  4. PLAQUENIL [Concomitant]
  5. SULFASALAZINE [Concomitant]
  6. DICLOFENAC [Concomitant]
  7. PROPRANOLOL [Concomitant]
  8. WELLBUTRIN [Concomitant]
  9. TRAZODONE [Concomitant]
  10. BACLOFEN [Concomitant]
  11. FOSAVANCE [Concomitant]
  12. HYDROMORPHONE [Concomitant]
  13. NASONEX [Concomitant]
  14. VALTREX [Concomitant]
  15. PREDNISONE [Concomitant]
  16. CYCLOSPORIN [Concomitant]
  17. RESTASIS [Concomitant]
     Route: 065

REACTIONS (2)
  - Transplant [Unknown]
  - Graft versus host disease [Unknown]
